FAERS Safety Report 12938819 (Version 2)
Quarter: 2017Q1

REPORT INFORMATION
  Report Type: Spontaneous
  Country: US (occurrence: US)
  Receive Date: 20161115
  Receipt Date: 20170104
  Transmission Date: 20170428
  Serious: Yes (Hospitalization)
  Sender: FDA-Public Use
  Company Number: GXBR2016US003401

PATIENT
  Sex: Female

DRUGS (4)
  1. VALIUM [Concomitant]
     Active Substance: DIAZEPAM
     Indication: PRODUCT USED FOR UNKNOWN INDICATION
     Dosage: UNK DF, UNK
     Route: 065
  2. NEXIUM [Concomitant]
     Active Substance: ESOMEPRAZOLE MAGNESIUM
     Indication: GASTROINTESTINAL DISORDER
     Dosage: UNK DF, UNK
     Route: 065
  3. GLATOPA [Suspect]
     Active Substance: GLATIRAMER ACETATE
     Indication: MULTIPLE SCLEROSIS
     Dosage: 20 MG, QD
     Route: 058
  4. REMERON [Concomitant]
     Active Substance: MIRTAZAPINE
     Indication: SLEEP DISORDER
     Dosage: UNK DF, UNK
     Route: 065

REACTIONS (7)
  - Muscular weakness [Not Recovered/Not Resolved]
  - Pain [Not Recovered/Not Resolved]
  - Neuralgia [Not Recovered/Not Resolved]
  - Gait disturbance [Not Recovered/Not Resolved]
  - Multiple sclerosis relapse [Not Recovered/Not Resolved]
  - Multiple sclerosis [Not Recovered/Not Resolved]
  - Central nervous system lesion [Not Recovered/Not Resolved]
